FAERS Safety Report 4792231-6 (Version None)
Quarter: 2005Q4

REPORT INFORMATION
  Report Type: 
  Country: None (occurrence: None)
  Receive Date: 20051007
  Receipt Date: 20050929
  Transmission Date: 20060501
  Serious: Yes (Hospitalization, Other)
  Sender: FDA-Public Use
  Company Number: US-MERCK-0510USA00618

PATIENT
  Age: 66 Year
  Sex: Male
  Weight: 114 kg

DRUGS (14)
  1. VIOXX [Suspect]
     Indication: PAIN IN EXTREMITY
     Route: 048
     Dates: start: 20000814, end: 20021213
  2. VIOXX [Suspect]
     Indication: ARTHRALGIA
     Route: 048
     Dates: start: 20000814, end: 20021213
  3. DILACOR XR [Concomitant]
     Indication: HYPERTENSION
     Route: 048
  4. AMIODARONE [Concomitant]
     Route: 048
  5. NORVASC [Concomitant]
     Route: 048
  6. PRINIVIL [Concomitant]
     Route: 048
  7. POTASSIUM (UNSPECIFIED) [Concomitant]
     Route: 048
  8. ASPIRIN [Concomitant]
     Route: 048
  9. KEPPRA [Concomitant]
     Route: 048
  10. AMBIEN [Concomitant]
     Route: 048
  11. EXELON [Concomitant]
     Route: 048
  12. LUPRON [Concomitant]
     Route: 048
  13. OXYCONTIN [Concomitant]
     Route: 048
  14. PERI-COLACE [Concomitant]
     Route: 048

REACTIONS (23)
  - ANGINA PECTORIS [None]
  - ANXIETY [None]
  - ATRIAL FIBRILLATION [None]
  - BACK PAIN [None]
  - BLOOD TESTOSTERONE DECREASED [None]
  - BRADYCARDIA [None]
  - CEREBROVASCULAR ACCIDENT [None]
  - CHEST PAIN [None]
  - CONVULSION [None]
  - DEMENTIA [None]
  - DEMENTIA ALZHEIMER'S TYPE [None]
  - DYSPNOEA [None]
  - FALL [None]
  - FATIGUE [None]
  - HYPERCHOLESTEROLAEMIA [None]
  - HYPERTENSION [None]
  - HYPOTHYROIDISM [None]
  - LACUNAR INFARCTION [None]
  - LUNG NEOPLASM [None]
  - OEDEMA PERIPHERAL [None]
  - SYNCOPE [None]
  - TRANSIENT ISCHAEMIC ATTACK [None]
  - VENTRICULAR EXTRASYSTOLES [None]
